FAERS Safety Report 15083418 (Version 1)
Quarter: 2018Q2

REPORT INFORMATION
  Report Type: Spontaneous
  Country: US (occurrence: US)
  Receive Date: 20180607
  Receipt Date: 20180607
  Transmission Date: 20180711
  Serious: Yes (Hospitalization, Disabling)
  Sender: FDA-Public Use
  Company Number: None

PATIENT
  Age: 60 Year
  Sex: Female
  Weight: 98.88 kg

DRUGS (6)
  1. LEVOTHYROXIN [Concomitant]
     Active Substance: LEVOTHYROXINE
  2. GADOLINIUM [Suspect]
     Active Substance: GADOLINIUM
  3. METFORMEN [Concomitant]
  4. DOLOPHINE [Concomitant]
     Active Substance: METHADONE HYDROCHLORIDE
  5. DAILY WOMEN^S VITAMIN [Concomitant]
  6. ALPROAZAM [Concomitant]

REACTIONS (13)
  - Alopecia [None]
  - Choking [None]
  - Nuclear magnetic resonance imaging brain abnormal [None]
  - Contrast media deposition [None]
  - Dysphagia [None]
  - Sensory disturbance [None]
  - Renal disorder [None]
  - Cardiac disorder [None]
  - Arthralgia [None]
  - Muscular weakness [None]
  - Dysphonia [None]
  - Thyroid cancer [None]
  - Bone pain [None]

NARRATIVE: CASE EVENT DATE: 20070428
